FAERS Safety Report 5098457-9 (Version None)
Quarter: 2006Q3

REPORT INFORMATION
  Report Type: 
  Country: None (occurrence: None)
  Receive Date: 20060906
  Receipt Date: 20060123
  Transmission Date: 20061208
  Serious: No
  Sender: FDA-Public Use
  Company Number: US-GLAXOSMITHKLINE-A0590487A

PATIENT
  Age: 83 Year
  Sex: Female

DRUGS (10)
  1. REQUIP [Suspect]
     Indication: RESTLESS LEGS SYNDROME
     Dosage: 2MG TWICE PER DAY
     Route: 048
     Dates: start: 20040101
  2. ASPIRIN [Concomitant]
  3. LOPRESSOR [Concomitant]
  4. FOSAMAX [Concomitant]
  5. M.V.I. [Concomitant]
  6. PRAVACHOL [Concomitant]
  7. ADVIL [Concomitant]
  8. FISH OIL [Concomitant]
  9. NASACORT AQ [Concomitant]
  10. ALBUTEROL [Concomitant]

REACTIONS (1)
  - DYSPNOEA [None]
